FAERS Safety Report 6148257-3 (Version None)
Quarter: 2009Q2

REPORT INFORMATION
  Report Type: 
  Country: None (occurrence: None)
  Receive Date: 20090408
  Receipt Date: 20090401
  Transmission Date: 20091009
  Serious: Yes (Other)
  Sender: FDA-Public Use
  Company Number: US-BAYER-200917146NA

PATIENT
  Age: 63 Year
  Sex: Female

DRUGS (2)
  1. SORAFENIB OR PLACEBO [Suspect]
     Indication: RENAL CELL CARCINOMA
     Dosage: TOTAL DAILY DOSE: 800 MG  UNIT DOSE: 200 MG
     Route: 048
     Dates: start: 20080904, end: 20090211
  2. SUNITINIB OR PLACEBO [Suspect]
     Indication: RENAL CELL CARCINOMA
     Dosage: TOTAL DAILY DOSE: 50 MG
     Route: 048
     Dates: start: 20080904, end: 20090128

REACTIONS (2)
  - HAEMOGLOBIN DECREASED [None]
  - PROTEINURIA [None]
